FAERS Safety Report 8599555-5 (Version None)
Quarter: 2012Q3

REPORT INFORMATION
  Report Type: 
  Country: None (occurrence: None)
  Receive Date: 20120816
  Receipt Date: 20120725
  Transmission Date: 20120928
  Serious: No
  Sender: FDA-Public Use
  Company Number: US-MYLANLABS-2012S1013011

PATIENT
  Age: 69 Year
  Sex: Male
  Weight: 68.04 kg

DRUGS (11)
  1. TERAZOSIN HYDROCHLORIDE [Concomitant]
     Route: 048
  2. SIMVASTATIN [Concomitant]
     Indication: BLOOD CHOLESTEROL INCREASED
     Route: 048
  3. METOPROLOL TARTRATE [Concomitant]
     Route: 048
  4. CRESTOR [Concomitant]
  5. HYDROCHLOROTHIAZIDE [Concomitant]
     Route: 048
  6. VITAMIN B COMPLEX CAP [Concomitant]
     Route: 048
  7. MELOXICAM [Suspect]
     Indication: ARTHRALGIA
     Route: 048
     Dates: start: 20110301, end: 20120301
  8. MELOXICAM [Suspect]
     Route: 048
  9. POTASSIUM [Concomitant]
     Route: 048
  10. ASPIRIN [Concomitant]
     Route: 048
  11. VITAMIN D [Concomitant]

REACTIONS (2)
  - PAIN [None]
  - DRUG INEFFECTIVE [None]
